FAERS Safety Report 24558475 (Version 2)
Quarter: 2024Q4

REPORT INFORMATION
  Report Type: Spontaneous
  Country: US (occurrence: US)
  Receive Date: 20241029
  Receipt Date: 20241107
  Transmission Date: 20250115
  Serious: No
  Sender: PAREXEL
  Company Number: US-COHERUS BIOSCIENCES, INC-2024-COH-US001058

PATIENT

DRUGS (5)
  1. UDENYCA [Suspect]
     Active Substance: PEGFILGRASTIM-CBQV
     Indication: Breast cancer
     Dosage: 6 MG/0.6 ML, Q2WEEKS
     Route: 058
     Dates: start: 20240928
  2. UDENYCA [Suspect]
     Active Substance: PEGFILGRASTIM-CBQV
     Dosage: 6 MG/0.6 ML, Q2WEEKS
     Route: 058
     Dates: start: 20241007
  3. DOXORUBICIN [Concomitant]
     Active Substance: DOXORUBICIN
  4. CYCLOPHOSPHAMIDE [Concomitant]
     Active Substance: CYCLOPHOSPHAMIDE
  5. PACLITAXEL [Concomitant]
     Active Substance: PACLITAXEL

REACTIONS (3)
  - Device malfunction [Unknown]
  - Product dose omission issue [Recovered/Resolved]
  - No adverse event [Unknown]

NARRATIVE: CASE EVENT DATE: 20240928
